FAERS Safety Report 8839395 (Version 1)
Quarter: 2012Q4

REPORT INFORMATION
  Report Type: Spontaneous
  Country: US (occurrence: None)
  Receive Date: 20121012
  Receipt Date: 20121012
  Transmission Date: 20130627
  Serious: No
  Sender: FDA-Public Use
  Company Number: None

PATIENT

DRUGS (1)
  1. ARM AND HAMMER BAKING SODA [Suspect]
     Dates: start: 20120701, end: 20120801

REACTIONS (5)
  - Skin exfoliation [None]
  - Wound [None]
  - Oral discomfort [None]
  - Lip discolouration [None]
  - Lip swelling [None]
